FAERS Safety Report 20782916 (Version 1)
Quarter: 2022Q2

REPORT INFORMATION
  Report Type: Report from Study
  Country: IN (occurrence: IN)
  Receive Date: 20220504
  Receipt Date: 20220504
  Transmission Date: 20220720
  Serious: Yes (Death, Life-Threatening, Other)
  Sender: FDA-Public Use
  Company Number: IN-SA-SAC20220502001612

PATIENT
  Age: 40 Year
  Sex: Male

DRUGS (2)
  1. INSULIN GLARGINE [Suspect]
     Active Substance: INSULIN GLARGINE
     Indication: Type 2 diabetes mellitus
     Dosage: 16IU, QD
     Route: 058
     Dates: start: 20220305, end: 20220428
  2. METFORMIN [Concomitant]
     Active Substance: METFORMIN HYDROCHLORIDE
     Dosage: FPG145MG

REACTIONS (1)
  - Bone cancer [Fatal]

NARRATIVE: CASE EVENT DATE: 20220428
